FAERS Safety Report 4969432-7 (Version None)
Quarter: 2006Q2

REPORT INFORMATION
  Report Type: 
  Country: None (occurrence: None)
  Receive Date: 20060405
  Receipt Date: 20060327
  Transmission Date: 20061013
  Serious: Yes (Other)
  Sender: FDA-Public Use
  Company Number: 2006042919

PATIENT
  Age: 64 Year
  Sex: Male
  Weight: 82.1011 kg

DRUGS (1)
  1. NORVASC [Suspect]
     Indication: HYPERTENSION
     Dosage: 10 MG (10 MG, 1 IN 24 HR), ORAL
     Route: 048
     Dates: start: 19980101

REACTIONS (1)
  - CATARACT [None]
